FAERS Safety Report 25149089 (Version 3)
Quarter: 2025Q2

REPORT INFORMATION
  Report Type: Spontaneous
  Country: US (occurrence: US)
  Receive Date: 20250402
  Receipt Date: 20250617
  Transmission Date: 20250717
  Serious: Yes (Other)
  Sender: RANBAXY
  Company Number: US-SUN PHARMACEUTICAL INDUSTRIES LTD-2025R1-501612

PATIENT
  Age: 15 Year
  Sex: Female

DRUGS (2)
  1. FLECAINIDE ACETATE [Suspect]
     Active Substance: FLECAINIDE ACETATE
     Indication: Andersen-Tawil syndrome
     Route: 065
  2. NADOLOL [Concomitant]
     Active Substance: NADOLOL
     Indication: Andersen-Tawil syndrome
     Route: 065

REACTIONS (1)
  - Cardiac arrest [Unknown]
